FAERS Safety Report 26193220 (Version 1)
Quarter: 2025Q4

REPORT INFORMATION
  Report Type: Spontaneous
  Country: US (occurrence: US)
  Receive Date: 20251223
  Receipt Date: 20251223
  Transmission Date: 20260117
  Serious: No
  Sender: STRIDES
  Company Number: US-STRIDES ARCOLAB LIMITED-2025SP001788

PATIENT
  Age: 37 Year
  Sex: Male

DRUGS (3)
  1. METHOTREXATE [Interacting]
     Active Substance: METHOTREXATE
     Indication: Multicentric reticulohistiocytosis
     Dosage: 15 MILLIGRAM WEEKLY
     Route: 065
  2. INFLIXIMAB [Interacting]
     Active Substance: INFLIXIMAB
     Indication: Multicentric reticulohistiocytosis
     Dosage: 100 MILLIGRAM, EVERY 8 WEEKS
     Route: 042
  3. FOLATE SODIUM [Concomitant]
     Active Substance: FOLATE SODIUM
     Indication: Multicentric reticulohistiocytosis
     Dosage: 1 MILLIGRAM, QD
     Route: 065

REACTIONS (2)
  - Drug interaction [Unknown]
  - Off label use [Unknown]
